FAERS Safety Report 14676389 (Version 1)
Quarter: 2018Q1

REPORT INFORMATION
  Report Type: Spontaneous
  Country: US (occurrence: US)
  Receive Date: 20180323
  Receipt Date: 20180323
  Transmission Date: 20180509
  Serious: Yes (Death)
  Sender: FDA-Public Use
  Company Number: None

PATIENT
  Age: 63 Year
  Sex: Male
  Weight: 68.7 kg

DRUGS (1)
  1. ELBASVIR-GRAZOPREVIR [Suspect]
     Active Substance: ELBASVIR\GRAZOPREVIR
     Indication: CHRONIC HEPATITIS C
     Dosage: DOSE - 50-100
     Route: 048
     Dates: start: 20171101, end: 20171214

REACTIONS (1)
  - Death [None]

NARRATIVE: CASE EVENT DATE: 20171214
